FAERS Safety Report 13426488 (Version 1)
Quarter: 2017Q2

REPORT INFORMATION
  Report Type: Spontaneous
  Country: AU (occurrence: AU)
  Receive Date: 20170411
  Receipt Date: 20170411
  Transmission Date: 20170830
  Serious: Yes (Other)
  Sender: FDA-Public Use
  Company Number: PHHY2017AU050600

PATIENT
  Sex: Male

DRUGS (3)
  1. EXJADE [Suspect]
     Active Substance: DEFERASIROX
     Indication: CHRONIC LYMPHOCYTIC LEUKAEMIA
  2. EXJADE [Suspect]
     Active Substance: DEFERASIROX
     Indication: DYSPLASIA
     Dosage: 2000 MG, QD
     Route: 065
  3. DEFEROXAMINE [Suspect]
     Active Substance: DEFEROXAMINE\DEFEROXAMINE MESYLATE
     Indication: DYSPLASIA
     Route: 065

REACTIONS (2)
  - Blindness transient [Recovered/Resolved]
  - Off label use [Unknown]
